FAERS Safety Report 25469524 (Version 1)
Quarter: 2025Q2

REPORT INFORMATION
  Report Type: Report from Study
  Country: IN (occurrence: IN)
  Receive Date: 20250623
  Receipt Date: 20250623
  Transmission Date: 20250717
  Serious: Yes (Other)
  Sender: NOVARTIS
  Company Number: IN-002147023-NVSC2024IN002962

PATIENT
  Age: 44 Year
  Sex: Male

DRUGS (1)
  1. TASIGNA [Suspect]
     Active Substance: NILOTINIB
     Indication: Chronic myeloid leukaemia
     Dosage: 400 MG, BID (TO BE TAKEN 1 HOUR BEFORE FOOD TO CONTNIUE)
     Route: 048
     Dates: start: 20150228

REACTIONS (12)
  - Electrocardiogram QT interval abnormal [Unknown]
  - Performance status decreased [Recovered/Resolved]
  - Peripheral venous disease [Unknown]
  - Lipids abnormal [Unknown]
  - Peripheral swelling [Unknown]
  - Hypertension [Unknown]
  - Varicose vein [Unknown]
  - Haematuria [Unknown]
  - Vitamin D abnormal [Unknown]
  - Blood calcium abnormal [Unknown]
  - Urine analysis abnormal [Unknown]
  - Bacterial test positive [Unknown]

NARRATIVE: CASE EVENT DATE: 20170221
